FAERS Safety Report 9461186 (Version 1)
Quarter: 2013Q3

REPORT INFORMATION
  Report Type: Spontaneous
  Country: US (occurrence: None)
  Receive Date: 20130814
  Receipt Date: 20130814
  Transmission Date: 20140515
  Serious: Yes (Life-Threatening)
  Sender: FDA-Public Use
  Company Number: None

PATIENT
  Age: 58 Year
  Sex: Female

DRUGS (5)
  1. VALSARTAN-HCTZ [Suspect]
     Indication: HYPERTENSION
     Dosage: 7/20 TO 8/3?1 DAILY BY MOUTH
     Route: 048
  2. CLARITIN [Concomitant]
  3. ASA EC [Concomitant]
  4. CALTRATE 600 WITH VITAMIN D [Concomitant]
  5. MULTIVITAMIN [Concomitant]

REACTIONS (2)
  - Oral discomfort [None]
  - Product substitution issue [None]
